FAERS Safety Report 25220927 (Version 1)
Quarter: 2025Q2

REPORT INFORMATION
  Report Type: Spontaneous
  Country: US (occurrence: None)
  Receive Date: 20250420
  Receipt Date: 20250420
  Transmission Date: 20250716
  Serious: No
  Sender: FDA-CTU
  Company Number: None

PATIENT
  Age: 22 Year
  Sex: Male
  Weight: 86.4 kg

DRUGS (4)
  1. FINASTERIDE [Suspect]
     Active Substance: FINASTERIDE
     Indication: Androgenetic alopecia
     Dosage: 1 TABLET DAILY ORAL
     Route: 048
     Dates: start: 20250312, end: 20250312
  2. MINOXIDIL [Suspect]
     Active Substance: MINOXIDIL
     Indication: Androgenetic alopecia
     Dosage: 1 TABLET(S) AT BEDTIME ORAL
     Route: 048
     Dates: start: 20250312, end: 20250312
  3. MAGNESIUM GLYCINATE [Concomitant]
     Active Substance: MAGNESIUM GLYCINATE
  4. DIETARY SUPPLEMENT [Concomitant]
     Active Substance: DIETARY SUPPLEMENT

REACTIONS (18)
  - Penile size reduced [None]
  - Insomnia [None]
  - Loss of libido [None]
  - Erectile dysfunction [None]
  - Decreased appetite [None]
  - Emotional disorder [None]
  - Fatigue [None]
  - Anorgasmia [None]
  - Ejaculation disorder [None]
  - Penile curvature [None]
  - Dry skin [None]
  - Skin disorder [None]
  - Muscle twitching [None]
  - Hypohidrosis [None]
  - Skin odour abnormal [None]
  - Disturbance in attention [None]
  - Anxiety [None]
  - Flat affect [None]

NARRATIVE: CASE EVENT DATE: 20250312
